FAERS Safety Report 23495182 (Version 1)
Quarter: 2024Q1

REPORT INFORMATION
  Report Type: Spontaneous
  Country: CN (occurrence: None)
  Receive Date: 20240207
  Receipt Date: 20240207
  Transmission Date: 20240410
  Serious: Yes (Hospitalization, Other)
  Sender: FDA-Public Use
  Company Number: 2024A026720

PATIENT
  Age: 24889 Day
  Sex: Female
  Weight: 49 kg

DRUGS (2)
  1. FULVESTRANT [Suspect]
     Active Substance: FULVESTRANT
     Indication: Blood oestrogen abnormal
     Dosage: 0.5 G, ONCE EVERY 4 DAYS
     Route: 030
     Dates: start: 20210730, end: 20210813
  2. ABEMACICLIB [Suspect]
     Active Substance: ABEMACICLIB
     Indication: Neoplasm
     Route: 048
     Dates: start: 20210730, end: 20210818

REACTIONS (3)
  - Hyponatraemia [Recovering/Resolving]
  - Vomiting [Recovering/Resolving]
  - Hepatic enzyme increased [Recovering/Resolving]

NARRATIVE: CASE EVENT DATE: 20210807
